FAERS Safety Report 7907031-5 (Version None)
Quarter: 2011Q4

REPORT INFORMATION
  Report Type: 
  Country: None (occurrence: None)
  Receive Date: 20111110
  Receipt Date: 20111102
  Transmission Date: 20120403
  Serious: Yes (Hospitalization, Other)
  Sender: FDA-Public Use
  Company Number: US-MERCK-1107USA02329

PATIENT
  Age: 62 Year
  Sex: Female

DRUGS (3)
  1. FOSAMAX PLUS D [Suspect]
     Indication: OSTEOPOROSIS
     Route: 048
     Dates: start: 20050401, end: 20090701
  2. TEKTURNA [Concomitant]
     Indication: HYPERTENSION
     Route: 065
     Dates: start: 20050101
  3. CRESTOR [Concomitant]
     Indication: BLOOD CHOLESTEROL
     Route: 065
     Dates: start: 20050101

REACTIONS (22)
  - RHEUMATOID ARTHRITIS [None]
  - RETINOPATHY HYPERTENSIVE [None]
  - CATARACT [None]
  - FALL [None]
  - APPENDIX DISORDER [None]
  - GENERALISED ANXIETY DISORDER [None]
  - CARPAL TUNNEL SYNDROME [None]
  - ELECTROCARDIOGRAM ABNORMAL [None]
  - THORACIC VERTEBRAL FRACTURE [None]
  - RENAL CELL CARCINOMA STAGE III [None]
  - GOITRE [None]
  - CARDIOVASCULAR FUNCTION TEST ABNORMAL [None]
  - OXYGEN SATURATION DECREASED [None]
  - ASTHENIA [None]
  - DYSPNOEA [None]
  - BLOOD CALCIUM DECREASED [None]
  - VITAMIN D DEFICIENCY [None]
  - INCORRECT DOSE ADMINISTERED [None]
  - FEMUR FRACTURE [None]
  - URINARY RETENTION [None]
  - OSTEOPOROSIS [None]
  - ABDOMINAL DISCOMFORT [None]
